FAERS Safety Report 9895201 (Version 2)
Quarter: 2014Q1

REPORT INFORMATION
  Report Type: Spontaneous
  Country: US (occurrence: US)
  Receive Date: 20140213
  Receipt Date: 20140213
  Transmission Date: 20141002
  Serious: Yes (Other)
  Sender: FDA-Public Use
  Company Number: US-BRISTOL-MYERS SQUIBB COMPANY-19332691

PATIENT
  Age: 51 Year
  Sex: Female
  Weight: 95.24 kg

DRUGS (6)
  1. ORENCIA [Suspect]
     Dosage: 1 DF : 125MG/ML
  2. REBIF [Suspect]
  3. DETROL [Concomitant]
     Dosage: TAB
  4. METHOTREXATE [Concomitant]
     Dosage: TAB
  5. FOLIC ACID [Concomitant]
     Dosage: TAB
  6. SULFASALAZINE [Concomitant]
     Dosage: TAB

REACTIONS (1)
  - Multiple sclerosis relapse [Unknown]
